FAERS Safety Report 6898576-8 (Version None)
Quarter: 2010Q3

REPORT INFORMATION
  Report Type: 
  Country: None (occurrence: None)
  Receive Date: 20100802
  Receipt Date: 20071029
  Transmission Date: 20110219
  Serious: No
  Sender: FDA-Public Use
  Company Number: US-PFIZER INC-2007091730

PATIENT
  Sex: Female
  Weight: 63.636 kg

DRUGS (6)
  1. LYRICA [Suspect]
     Indication: NEUROPATHY PERIPHERAL
     Dates: start: 20070101
  2. OXYCODONE [Concomitant]
  3. SOMA [Concomitant]
  4. XANAX [Concomitant]
  5. ZOLOFT [Concomitant]
  6. DRUG, UNSPECIFIED [Concomitant]

REACTIONS (3)
  - FAECES HARD [None]
  - FLATULENCE [None]
  - WEIGHT INCREASED [None]
